FAERS Safety Report 5375517-6 (Version None)
Quarter: 2007Q2

REPORT INFORMATION
  Report Type: 
  Country: None (occurrence: None)
  Receive Date: 20070629
  Receipt Date: 20070618
  Transmission Date: 20071010
  Serious: Yes (Other)
  Sender: FDA-Public Use
  Company Number: CL-PFIZER INC-2007050319

PATIENT
  Age: 55 Year
  Sex: Female
  Weight: 74 kg

DRUGS (3)
  1. LIPITOR [Suspect]
     Route: 048
     Dates: start: 20070522, end: 20070525
  2. LEVOTHYROXINE SODIUM [Concomitant]
     Route: 048
  3. BISOPROLOL FUMARATE [Concomitant]
     Route: 048

REACTIONS (5)
  - CHILLS [None]
  - CHOLURIA [None]
  - DIZZINESS [None]
  - HEPATITIS [None]
  - JAUNDICE [None]
